FAERS Safety Report 6849917-9 (Version None)
Quarter: 2010Q3

REPORT INFORMATION
  Report Type: 
  Country: None (occurrence: None)
  Receive Date: 20100716
  Receipt Date: 20071004
  Transmission Date: 20110219
  Serious: No
  Sender: FDA-Public Use
  Company Number: US-PFIZER INC-2007085200

PATIENT
  Sex: Female
  Weight: 76.8 kg

DRUGS (11)
  1. CHANTIX [Suspect]
     Indication: SMOKING CESSATION THERAPY
     Dates: start: 20070901
  2. ATOMOXETINE HCL [Concomitant]
  3. BUSPAR [Concomitant]
  4. KLONOPIN [Concomitant]
  5. CELEBREX [Concomitant]
  6. INDERAL LA [Concomitant]
  7. PREMARIN [Concomitant]
  8. MAXALT [Concomitant]
  9. DIAZIDE [Concomitant]
  10. VICODIN [Concomitant]
  11. ALBUTEROL [Concomitant]
     Route: 055

REACTIONS (2)
  - RETCHING [None]
  - VOMITING [None]
